FAERS Safety Report 21033474 (Version 3)
Quarter: 2023Q1

REPORT INFORMATION
  Report Type: Report from Study
  Country: US (occurrence: US)
  Receive Date: 20220701
  Receipt Date: 20230220
  Transmission Date: 20230417
  Serious: Yes (Other)
  Sender: FDA-Public Use
  Company Number: US-NOVARTISPH-NVSC2022US149534

PATIENT
  Sex: Male

DRUGS (1)
  1. PROMACTA [Suspect]
     Active Substance: ELTROMBOPAG OLAMINE
     Indication: Product used for unknown indication
     Dosage: UNK
     Route: 065

REACTIONS (6)
  - Hip fracture [Unknown]
  - Fall [Unknown]
  - Lower limb fracture [Unknown]
  - Rib fracture [Unknown]
  - Gait disturbance [Unknown]
  - Red blood cell count increased [Unknown]
